FAERS Safety Report 4569971-7 (Version None)
Quarter: 2005Q1

REPORT INFORMATION
  Report Type: 
  Country: None (occurrence: None)
  Receive Date: 20050204
  Receipt Date: 20050113
  Transmission Date: 20050727
  Serious: Yes (Death, Other)
  Sender: FDA-Public Use
  Company Number: 200510149JP

PATIENT
  Age: 59 Year
  Sex: Female
  Weight: 51 kg

DRUGS (11)
  1. TAXOTERE [Suspect]
     Indication: BREAST CANCER RECURRENT
     Route: 041
     Dates: start: 20050105, end: 20050105
  2. LASIX [Concomitant]
     Indication: ASCITES
     Route: 041
     Dates: start: 20050105, end: 20050107
  3. PRIMPERAN INJ [Concomitant]
     Indication: NAUSEA
     Route: 041
     Dates: start: 20050105, end: 20050108
  4. KYTRIL [Concomitant]
     Indication: NAUSEA
     Route: 041
     Dates: start: 20050105, end: 20050105
  5. NASEA OD [Concomitant]
     Indication: NAUSEA
     Route: 048
     Dates: start: 20050106, end: 20050108
  6. ROPION [Concomitant]
     Indication: PAIN
     Route: 041
     Dates: start: 20050106, end: 20050110
  7. DUROTEP [Concomitant]
     Indication: PAIN
     Route: 062
     Dates: start: 20050107, end: 20050111
  8. FARMORUBICIN [Concomitant]
     Indication: METASTASES TO LIVER
     Route: 013
     Dates: start: 20030801, end: 20041228
  9. PICIBANIL [Concomitant]
     Indication: ASCITES
     Dosage: DOSE: 10EK
     Route: 033
     Dates: start: 20041228, end: 20041228
  10. DECADRON [Concomitant]
     Dates: start: 20050105, end: 20050105
  11. AREDIA [Concomitant]
     Dates: start: 20041229, end: 20041229

REACTIONS (27)
  - ANURIA [None]
  - ANXIETY [None]
  - ASCITES [None]
  - BACK PAIN [None]
  - BLOOD CALCIUM DECREASED [None]
  - BLOOD CHLORIDE DECREASED [None]
  - BLOOD POTASSIUM DECREASED [None]
  - BLOOD PRESSURE DECREASED [None]
  - BLOOD SODIUM DECREASED [None]
  - BLOOD UREA INCREASED [None]
  - CARDIAC ARREST [None]
  - CONSTIPATION [None]
  - DEPRESSED LEVEL OF CONSCIOUSNESS [None]
  - HAEMATOCRIT DECREASED [None]
  - HAEMOGLOBIN DECREASED [None]
  - HALLUCINATION, AUDITORY [None]
  - HYPERKALAEMIA [None]
  - METASTASES TO BONE [None]
  - METASTASES TO LIVER [None]
  - METASTASES TO LYMPH NODES [None]
  - METASTASES TO NECK [None]
  - PERITONEAL CARCINOMA [None]
  - PERITONITIS [None]
  - RED BLOOD CELL COUNT DECREASED [None]
  - RESPIRATORY ARREST [None]
  - VOMITING [None]
  - WHITE BLOOD CELL COUNT DECREASED [None]
